FAERS Safety Report 4629685-1 (Version None)
Quarter: 2005Q2

REPORT INFORMATION
  Report Type: 
  Country: None (occurrence: None)
  Receive Date: 20050407
  Receipt Date: 20050324
  Transmission Date: 20051028
  Serious: Yes (Hospitalization)
  Sender: FDA-Public Use
  Company Number: 2005050194

PATIENT
  Sex: Female

DRUGS (6)
  1. NIFEDIPINE [Suspect]
     Indication: ILL-DEFINED DISORDER
     Dosage: 30 MG, ORAL
     Route: 048
     Dates: start: 20050101
  2. FLUVOXAMINE MALEATE [Suspect]
     Indication: ILL-DEFINED DISORDER
     Dosage: 50 MG, ORAL
     Route: 048
     Dates: start: 20050101
  3. VINPOCETINE (VINPOCETINE) [Suspect]
     Indication: ILL-DEFINED DISORDER
     Dosage: 10 MG, ORAL
     Route: 048
     Dates: start: 20050101
  4. ASPIRIN [Suspect]
     Indication: ILL-DEFINED DISORDER
     Dosage: 325 MG, ORAL
     Route: 048
     Dates: start: 20050101
  5. SIMVASTATIN [Suspect]
     Indication: ILL-DEFINED DISORDER
     Dosage: ORAL
     Route: 048
     Dates: start: 20050101
  6. OMEPRAZOLE [Suspect]
     Indication: ILL-DEFINED DISORDER
     Dosage: 20 MG, ORAL
     Dates: start: 20050101

REACTIONS (6)
  - DIZZINESS [None]
  - EMOTIONAL DISTRESS [None]
  - FEELING ABNORMAL [None]
  - HYPERTENSION [None]
  - MALAISE [None]
  - TACHYCARDIA [None]
